FAERS Safety Report 10677004 (Version 1)
Quarter: 2014Q4

REPORT INFORMATION
  Report Type: Spontaneous
  Country: IT (occurrence: IT)
  Receive Date: 20141226
  Receipt Date: 20141226
  Transmission Date: 20150529
  Serious: Yes (Life-Threatening, Other)
  Sender: FDA-Public Use
  Company Number: IT-ASTRAZENECA-2014SE98814

PATIENT
  Age: 10367 Day
  Sex: Male
  Weight: 97 kg

DRUGS (4)
  1. TRANQUIRIT [Suspect]
     Active Substance: DIAZEPAM
     Route: 048
     Dates: start: 20140808, end: 20140808
  2. SEROQUEL [Suspect]
     Active Substance: QUETIAPINE FUMARATE
     Route: 048
     Dates: start: 20140808, end: 20140808
  3. DEPAKIN [Concomitant]
     Active Substance: VALPROATE SODIUM
  4. REMERON [Concomitant]
     Active Substance: MIRTAZAPINE

REACTIONS (3)
  - Vomiting [Recovered/Resolved]
  - Suicide attempt [Recovered/Resolved]
  - Drug abuse [Recovered/Resolved]

NARRATIVE: CASE EVENT DATE: 20140808
